FAERS Safety Report 18702787 (Version 1)
Quarter: 2021Q1

REPORT INFORMATION
  Report Type: Spontaneous
  Country: PL (occurrence: PL)
  Receive Date: 20210105
  Receipt Date: 20210105
  Transmission Date: 20210419
  Serious: Yes (Other)
  Sender: FDA-Public Use
  Company Number: PL-AMGEN-POLSP2020209893

PATIENT
  Age: 28 Year
  Sex: Female

DRUGS (6)
  1. CISPLATIN;GEMCITABINE [Concomitant]
     Dosage: UNK
  2. CYCLOPHOSPHAMIDE;DOXORUBICIN [Concomitant]
  3. TRASTUZUMAB. [Suspect]
     Active Substance: TRASTUZUMAB
     Indication: BREAST CANCER
     Dosage: UNK
     Route: 065
  4. PACLITAXEL. [Concomitant]
     Active Substance: PACLITAXEL
     Dosage: UNK
  5. CAPECITABINE;VINORELBINE [Concomitant]
     Dosage: UNK
  6. CISPLATIN. [Concomitant]
     Active Substance: CISPLATIN
     Dosage: UNK

REACTIONS (2)
  - Breast cancer metastatic [Recovered/Resolved]
  - Therapy non-responder [Unknown]
